FAERS Safety Report 6616225-0 (Version None)
Quarter: 2010Q1

REPORT INFORMATION
  Report Type: 
  Country: None (occurrence: None)
  Receive Date: 20100305
  Receipt Date: 20100222
  Transmission Date: 20100710
  Serious: Yes (Other)
  Sender: FDA-Public Use
  Company Number: JP-WATSON-2010-02458

PATIENT
  Age: 76 Year
  Sex: Male

DRUGS (3)
  1. PREDNISOLONE [Suspect]
     Indication: NEPHROTIC SYNDROME
     Dosage: 50 MG, DAILY
     Route: 065
  2. CYCLOSPORINE [Suspect]
     Indication: NEPHROTIC SYNDROME
     Dosage: 175 MG, DAILY
  3. METHYLPREDNISOLONE ACETATE (WATSON LABORATORIES) [Suspect]
     Indication: NEPHROTIC SYNDROME
     Dosage: 1 G, DAILY X 4 DAYS

REACTIONS (2)
  - DRUG INEFFECTIVE [None]
  - HODGKIN'S DISEASE [None]
